FAERS Safety Report 5358332-9 (Version None)
Quarter: 2007Q2

REPORT INFORMATION
  Report Type: 
  Country: None (occurrence: None)
  Receive Date: 20070530
  Receipt Date: 20070307
  Transmission Date: 20071010
  Serious: Yes (Hospitalization, Other)
  Sender: FDA-Public Use
  Company Number: US200602001064

PATIENT
  Age: 52 Year
  Sex: Female
  Weight: 84.8 kg

DRUGS (4)
  1. ZYPREXA [Suspect]
     Indication: DEPRESSION
     Dosage: 10 MG; 5 MG,
     Dates: start: 19980406, end: 19991101
  2. ZYPREXA [Suspect]
     Indication: DEPRESSION
     Dosage: 10 MG; 5 MG,
     Dates: start: 19991101
  3. RISPERDAL [Concomitant]
  4. PAXIL [Concomitant]

REACTIONS (3)
  - DIABETES MELLITUS [None]
  - DIABETES MELLITUS NON-INSULIN-DEPENDENT [None]
  - PANCREATITIS [None]
